FAERS Safety Report 7123934-6 (Version None)
Quarter: 2010Q4

REPORT INFORMATION
  Report Type: 
  Country: None (occurrence: None)
  Receive Date: 20101126
  Receipt Date: 20101122
  Transmission Date: 20110411
  Serious: No
  Sender: FDA-Public Use
  Company Number: US-PFIZER INC-2010155757

PATIENT
  Sex: Male
  Weight: 90 kg

DRUGS (5)
  1. VIAGRA [Suspect]
     Indication: SEXUAL DYSFUNCTION
     Dosage: 50 MG, UNK
     Route: 048
     Dates: start: 20101121
  2. ADVIL [Concomitant]
     Indication: PAIN
     Dosage: 200 MG, 1X/DAY
     Route: 048
  3. GABAPENTIN [Concomitant]
     Indication: HERPES ZOSTER
     Dosage: 300 MG, 3X/DAY
     Route: 048
  4. LYRICA [Concomitant]
     Indication: PAIN
     Dosage: 50 MG, 1X/DAY
     Route: 048
  5. ACETYLSALICYLIC ACID [Concomitant]
     Indication: ANTICOAGULANT THERAPY
     Dosage: 81 MG, 1X/DAY
     Route: 048

REACTIONS (1)
  - DRUG INEFFECTIVE [None]
